FAERS Safety Report 20887035 (Version 1)
Quarter: 2022Q2

REPORT INFORMATION
  Report Type: Spontaneous
  Country: US (occurrence: US)
  Receive Date: 20220528
  Receipt Date: 20220528
  Transmission Date: 20220720
  Serious: Yes (Other)
  Sender: FDA-Public Use
  Company Number: US-NOVITIUMPHARMA-2022USNVP00076

PATIENT
  Age: 57 Year
  Sex: Male

DRUGS (4)
  1. DAPSONE [Suspect]
     Active Substance: DAPSONE
     Indication: Urticarial vasculitis
  2. PREDNISONE [Concomitant]
     Active Substance: PREDNISONE
     Indication: Urticarial vasculitis
  3. CETIRIZINE [Concomitant]
     Active Substance: CETIRIZINE HYDROCHLORIDE
     Indication: Urticarial vasculitis
  4. ADALIMUMAB [Concomitant]
     Active Substance: ADALIMUMAB
     Indication: Rheumatoid arthritis

REACTIONS (2)
  - Choroidal effusion [Recovered/Resolved]
  - Retinal detachment [Recovered/Resolved]
